FAERS Safety Report 7741183-5 (Version None)
Quarter: 2011Q3

REPORT INFORMATION
  Report Type: 
  Country: None (occurrence: None)
  Receive Date: 20110909
  Receipt Date: 20110829
  Transmission Date: 20111222
  Serious: Yes (Life-Threatening, Hospitalization, Other)
  Sender: FDA-Public Use
  Company Number: US-ELI_LILLY_AND_COMPANY-US201108009242

PATIENT
  Age: 78 Year
  Sex: Male

DRUGS (1)
  1. CYMBALTA [Suspect]
     Indication: DEPRESSION
     Dosage: 60 MG, QD

REACTIONS (4)
  - LARYNGEAL CANCER [None]
  - INFECTION [None]
  - NUTRITIONAL CONDITION ABNORMAL [None]
  - WRONG TECHNIQUE IN DRUG USAGE PROCESS [None]
